FAERS Safety Report 14117656 (Version 3)
Quarter: 2018Q4

REPORT INFORMATION
  Report Type: Spontaneous
  Country: JP (occurrence: JP)
  Receive Date: 20171023
  Receipt Date: 20181025
  Transmission Date: 20190204
  Serious: Yes (Death, Other)
  Sender: FDA-Public Use
  Company Number: JP-CELGENEUS-JPN-20171005804

PATIENT
  Age: 8 Decade
  Sex: Male

DRUGS (3)
  1. REVLIMID [Suspect]
     Active Substance: LENALIDOMIDE
     Indication: PLASMA CELL MYELOMA
     Dosage: UNKNOWN
     Route: 048
  2. MELPHALAN. [Concomitant]
     Active Substance: MELPHALAN
     Indication: PLASMA CELL MYELOMA
     Dosage: UNKNOWN
     Route: 065
  3. LENADEX [Suspect]
     Active Substance: DEXAMETHASONE ACETATE
     Indication: PLASMA CELL MYELOMA
     Dosage: UNKNOWN
     Route: 048

REACTIONS (12)
  - Pleural effusion [Fatal]
  - Altered state of consciousness [Unknown]
  - Delirium [Unknown]
  - Cardiac failure [Unknown]
  - Atelectasis [Fatal]
  - Plasma cell myeloma [Fatal]
  - General physical health deterioration [Fatal]
  - Renal impairment [Unknown]
  - Amyloidosis [Fatal]
  - Renal failure [Unknown]
  - Pyrexia [Unknown]
  - Myeloma cast nephropathy [Fatal]
